FAERS Safety Report 7158673-9 (Version None)
Quarter: 2010Q4

REPORT INFORMATION
  Report Type: 
  Country: None (occurrence: None)
  Receive Date: 20101214
  Receipt Date: 20100709
  Transmission Date: 20110411
  Serious: No
  Sender: FDA-Public Use
  Company Number: US-ASTRAZENECA-2010SE29458

PATIENT
  Age: 75 Year
  Sex: Female
  Weight: 74.8 kg

DRUGS (4)
  1. CRESTOR [Suspect]
     Indication: HYPERCHOLESTEROLAEMIA
     Route: 048
     Dates: start: 20050101, end: 20100501
  2. CRESTOR [Suspect]
     Route: 048
  3. NORVASC [Concomitant]
     Indication: HYPERTENSION
  4. CELEXA [Concomitant]
     Indication: ANXIETY

REACTIONS (4)
  - ASTHENIA [None]
  - MYALGIA [None]
  - POLYMYALGIA RHEUMATICA [None]
  - RED BLOOD CELL SEDIMENTATION RATE INCREASED [None]
